FAERS Safety Report 7438409-4 (Version None)
Quarter: 2011Q2

REPORT INFORMATION
  Report Type: 
  Country: None (occurrence: None)
  Receive Date: 20110426
  Receipt Date: 20110404
  Transmission Date: 20111010
  Serious: Yes (Hospitalization, Other)
  Sender: FDA-Public Use
  Company Number: US-BAYER-201029579NA

PATIENT
  Age: 17 Year
  Sex: Female
  Weight: 63 kg

DRUGS (3)
  1. YASMIN [Suspect]
     Indication: CONTRACEPTION
     Dosage: UNK
     Route: 048
     Dates: start: 20071001, end: 20080116
  2. NAPROSYN [Concomitant]
     Indication: PAIN
     Dosage: 250 MG, BID
     Route: 048
     Dates: end: 20080120
  3. PERCOCET [Concomitant]
     Indication: PAIN
     Dosage: UNK UNK, PRN
     Dates: end: 20080120

REACTIONS (2)
  - DEEP VEIN THROMBOSIS [None]
  - PULMONARY EMBOLISM [None]
